FAERS Safety Report 13546379 (Version 3)
Quarter: 2017Q4

REPORT INFORMATION
  Report Type: Spontaneous
  Country: US (occurrence: US)
  Receive Date: 20170515
  Receipt Date: 20171227
  Transmission Date: 20180320
  Serious: Yes (Other)
  Sender: FDA-Public Use
  Company Number: US-BAYER-2017-086196

PATIENT
  Sex: Male

DRUGS (1)
  1. MIRALAX [Suspect]
     Active Substance: POLYETHYLENE GLYCOL 3350
     Indication: LAXATIVE SUPPORTIVE CARE
     Dosage: DAILY DOSES

REACTIONS (7)
  - Seizure [Recovered/Resolved]
  - Mental impairment [Recovering/Resolving]
  - Serum serotonin decreased [Recovering/Resolving]
  - Epilepsy [Recovered/Resolved]
  - Suicide attempt [Recovered/Resolved]
  - Anger [Recovered/Resolved]
  - Dysbacteriosis [None]
